FAERS Safety Report 20872921 (Version 1)
Quarter: 2022Q2

REPORT INFORMATION
  Report Type: Spontaneous
  Country: HR (occurrence: HR)
  Receive Date: 20220525
  Receipt Date: 20220525
  Transmission Date: 20220721
  Serious: Yes (Other)
  Sender: FDA-Public Use
  Company Number: HR-009507513-2205HRV005334

PATIENT
  Sex: Male
  Weight: 100 kg

DRUGS (10)
  1. ZERBAXA [Suspect]
     Active Substance: CEFTOLOZANE SULFATE\TAZOBACTAM SODIUM
     Dosage: UNK
     Dates: start: 20201014, end: 20201022
  2. COLISTIN [Concomitant]
     Active Substance: COLISTIN
     Dosage: UNK
     Dates: start: 20201014, end: 20201022
  3. FOSFOMYCIN [Concomitant]
     Active Substance: FOSFOMYCIN
     Dosage: UNK
     Dates: start: 20201014, end: 20201022
  4. LINEZOLID [Concomitant]
     Active Substance: LINEZOLID
     Dosage: UNK
     Dates: start: 20201008, end: 20201014
  5. LINEZOLID [Concomitant]
     Active Substance: LINEZOLID
     Dosage: UNK
     Dates: start: 20201014, end: 20201022
  6. CASPOFUNGIN [Concomitant]
     Active Substance: CASPOFUNGIN
     Dosage: UNK
     Dates: start: 20201008, end: 20201014
  7. VANCOMYCIN [Concomitant]
     Active Substance: VANCOMYCIN
     Dosage: UNK
     Dates: start: 20201001, end: 20201008
  8. MEROPENEM [Concomitant]
     Active Substance: MEROPENEM
     Dosage: UNK
     Dates: start: 20201001, end: 20201008
  9. PIPERACILLIN [Concomitant]
     Active Substance: PIPERACILLIN
     Dosage: UNK
     Dates: start: 20200923, end: 20201001
  10. TAZOBACTAM [Concomitant]
     Active Substance: TAZOBACTAM
     Dosage: UNK
     Dates: start: 20200923, end: 20201001

REACTIONS (23)
  - Jejunectomy [Unknown]
  - Jejunostomy closure [Unknown]
  - Jejunostomy [Unknown]
  - Laparotomy [Unknown]
  - Jejunostomy [Unknown]
  - Jejunostomy closure [Unknown]
  - Explorative laparotomy [Unknown]
  - Laparotomy [Unknown]
  - Laparotomy [Unknown]
  - Laparotomy [Unknown]
  - Laparotomy [Unknown]
  - Laparotomy [Unknown]
  - Laparotomy [Unknown]
  - Laparotomy [Unknown]
  - Gastrostomy [Unknown]
  - C-reactive protein abnormal [Unknown]
  - Procalcitonin abnormal [Unknown]
  - Blood lactate dehydrogenase abnormal [Unknown]
  - White blood cell disorder [Unknown]
  - Drainage [Unknown]
  - Drainage [Unknown]
  - Drainage [Unknown]
  - Drainage [Unknown]

NARRATIVE: CASE EVENT DATE: 20201014
